FAERS Safety Report 5299722-2 (Version None)
Quarter: 2007Q2

REPORT INFORMATION
  Report Type: 
  Country: None (occurrence: None)
  Receive Date: 20070410
  Receipt Date: 20070403
  Transmission Date: 20071010
  Serious: Yes (Life-Threatening, Other)
  Sender: FDA-Public Use
  Company Number: 07H-055-0312254-00

PATIENT
  Age: 65 Year
  Sex: Female

DRUGS (10)
  1. PRECEDEX [Suspect]
     Indication: SEDATION
     Dosage: SEE IMAGE
     Route: 042
     Dates: start: 20070225, end: 20070225
  2. ACTRAPID [Concomitant]
  3. DOBUJECT INFUSION (DOBUTAMINE HYDROCHLORIDE) [Concomitant]
  4. FENTANYL INFUSION (FENTANYL) [Concomitant]
  5. FURESIS (FUROSEMIDE) (FUROSEMIDE) [Concomitant]
  6. MERONEM (MEROPENEM) [Concomitant]
  7. METRONIDAZOLE BRAUN (METRONIDAZOLE) [Concomitant]
  8. NORADRENALINA [Concomitant]
  9. SOLU-MEDROL [Concomitant]
  10. PANTOPRAZOLE SODIUM [Concomitant]

REACTIONS (7)
  - CARDIAC INDEX DECREASED [None]
  - CARDIOVASCULAR INSUFFICIENCY [None]
  - HYPOTENSION [None]
  - MULTI-ORGAN FAILURE [None]
  - RENAL FAILURE [None]
  - RESPIRATORY FAILURE [None]
  - SEPSIS [None]
